FAERS Safety Report 6643054-4 (Version None)
Quarter: 2010Q1

REPORT INFORMATION
  Report Type: 
  Country: None (occurrence: None)
  Receive Date: 20100319
  Receipt Date: 20100310
  Transmission Date: 20100710
  Serious: Yes (Other)
  Sender: FDA-Public Use
  Company Number: JP-ELI_LILLY_AND_COMPANY-JP201003004263

PATIENT
  Sex: Female

DRUGS (1)
  1. GEMCITABINE HCL [Suspect]
     Indication: PANCREATIC CARCINOMA
     Route: 042

REACTIONS (2)
  - LUNG DISORDER [None]
  - MALIGNANT PLEURAL EFFUSION [None]
